FAERS Safety Report 6161232-8 (Version None)
Quarter: 2009Q2

REPORT INFORMATION
  Report Type: 
  Country: None (occurrence: None)
  Receive Date: 20090417
  Receipt Date: 20090408
  Transmission Date: 20091009
  Serious: Yes (Other)
  Sender: FDA-Public Use
  Company Number: DSA_33490_2009

PATIENT
  Age: 54 Year
  Sex: Female

DRUGS (3)
  1. XENAZINE [Suspect]
     Indication: HUNTINGTON'S CHOREA
     Dosage: (12.5 MG QD)
     Dates: end: 20090301
  2. RESERPINE [Concomitant]
  3. CELEXA [Concomitant]

REACTIONS (1)
  - FACIAL PALSY [None]
